FAERS Safety Report 4541130-3 (Version None)
Quarter: 2004Q4

REPORT INFORMATION
  Report Type: 
  Country: None (occurrence: None)
  Receive Date: 20041228
  Receipt Date: 20041207
  Transmission Date: 20050328
  Serious: Yes (Hospitalization)
  Sender: FDA-Public Use
  Company Number: 20041200508

PATIENT
  Age: 58 Year
  Sex: Female

DRUGS (2)
  1. ATIVAN [Suspect]
     Indication: SEDATION
     Dosage: 2 MG ONCE IV
     Route: 042
     Dates: start: 20041203, end: 20041203
  2. BARBITUATE [Suspect]
     Indication: SEDATION
     Dates: start: 20041203, end: 20041203

REACTIONS (2)
  - DYSARTHRIA [None]
  - SOMNOLENCE [None]
